FAERS Safety Report 6422890-3 (Version None)
Quarter: 2009Q4

REPORT INFORMATION
  Report Type: 
  Country: None (occurrence: None)
  Receive Date: 20091102
  Receipt Date: 20091022
  Transmission Date: 20100525
  Serious: Yes (Hospitalization)
  Sender: FDA-Public Use
  Company Number: CA-SP-2009-03034

PATIENT
  Age: 47 Year
  Sex: Female

DRUGS (2)
  1. TUBERSOL [Suspect]
     Indication: TUBERCULIN TEST
     Route: 065
     Dates: start: 20090211
  2. SYMBICORT [Concomitant]

REACTIONS (11)
  - ANAPHYLACTIC REACTION [None]
  - ANXIETY [None]
  - CHEST DISCOMFORT [None]
  - DYSGEUSIA [None]
  - PAIN IN EXTREMITY [None]
  - PARAESTHESIA [None]
  - PARAESTHESIA ORAL [None]
  - PHARYNGEAL OEDEMA [None]
  - RESPIRATORY DISORDER [None]
  - THROAT IRRITATION [None]
  - THROAT TIGHTNESS [None]
